FAERS Safety Report 8037864-9 (Version None)
Quarter: 2012Q1

REPORT INFORMATION
  Report Type: 
  Country: None (occurrence: None)
  Receive Date: 20120111
  Receipt Date: 20120104
  Transmission Date: 20120608
  Serious: Yes (Hospitalization, Other)
  Sender: FDA-Public Use
  Company Number: PHHY2012LT001657

PATIENT
  Age: 28 Year
  Sex: Male
  Weight: 70 kg

DRUGS (3)
  1. AMITRIPTYLINE HCL [Suspect]
     Route: 048
     Dates: start: 20111206
  2. OXAZEPAM [Suspect]
     Route: 048
     Dates: start: 20111206
  3. AMOXICILLIN [Suspect]
     Dosage: 6 DF, UNK
     Route: 048
     Dates: start: 20111206

REACTIONS (3)
  - SUICIDE ATTEMPT [None]
  - COMA [None]
  - INCORRECT DOSE ADMINISTERED [None]
